FAERS Safety Report 4617471-8 (Version None)
Quarter: 2005Q1

REPORT INFORMATION
  Report Type: 
  Country: None (occurrence: None)
  Receive Date: 20050324
  Receipt Date: 20041222
  Transmission Date: 20050727
  Serious: Yes (Hospitalization)
  Sender: FDA-Public Use
  Company Number: FR-BRISTOL-MYERS SQUIBB COMPANY-12803540

PATIENT
  Age: 50 Year
  Sex: Male
  Weight: 56 kg

DRUGS (11)
  1. REYATAZ [Suspect]
     Indication: HIV INFECTION
     Route: 048
     Dates: start: 20040806, end: 20041013
  2. NORVIR [Suspect]
     Indication: HIV INFECTION
     Dosage: INTERRUPTED ON 13-OCT-2004, RESTARTED ON 17-NOV-2004.
     Route: 048
     Dates: start: 20040806
  3. EPIVIR [Suspect]
     Indication: HIV INFECTION
     Dosage: INTERRUPTED ON 13-OCT-2004, RESTARTED ON 17-NOV-2004.
     Route: 048
     Dates: start: 20040806
  4. ZIAGEN [Suspect]
     Indication: HIV INFECTION
     Route: 048
     Dates: start: 20040806, end: 20041013
  5. AZADOSE [Concomitant]
  6. BACTRIM [Concomitant]
  7. OMEPRAZOLE [Concomitant]
  8. AUGMENTIN '125' [Concomitant]
  9. TRIFLUCAN [Concomitant]
  10. TELZIR [Concomitant]
     Dates: start: 20041117
  11. VIREAD [Concomitant]
     Dates: start: 20041117

REACTIONS (3)
  - HEPATITIS [None]
  - PYREXIA [None]
  - VOMITING [None]
